FAERS Safety Report 9768104 (Version 2)
Quarter: 2014Q1

REPORT INFORMATION
  Report Type: Report from Study
  Country: MW (occurrence: MW)
  Receive Date: 20131217
  Receipt Date: 20140212
  Transmission Date: 20141002
  Serious: Yes (Death, Hospitalization)
  Sender: FDA-Public Use
  Company Number: MW-009507513-1312MWI005537

PATIENT
  Age: 33 Year
  Sex: Male

DRUGS (11)
  1. RALTEGRAVIR POTASSIUM [Suspect]
     Indication: HIV INFECTION
     Dosage: UNK
     Route: 048
     Dates: start: 20131111, end: 20140203
  2. EFAVIRENZ [Suspect]
     Indication: HIV INFECTION
     Dosage: UNK
     Route: 048
     Dates: start: 20131111, end: 20140206
  3. EMTRICITABINE [Suspect]
     Indication: HIV INFECTION
     Dosage: UNK
     Route: 048
     Dates: start: 20131111, end: 20140206
  4. TENOFOVIR [Suspect]
     Indication: HIV INFECTION
     Dosage: UNK
     Route: 048
     Dates: start: 20131111, end: 20140206
  5. FLUCONAZOLE [Concomitant]
     Dosage: UNK
     Dates: start: 20131111, end: 20140206
  6. SULFAMETHOXAZOLE (+) TRIMETHOPRIM [Concomitant]
     Dosage: UNK
     Dates: start: 20131017, end: 20140206
  7. ISONIAZID [Concomitant]
     Dosage: UNK
     Dates: start: 20131213, end: 20140206
  8. PYRIDOXINE [Concomitant]
     Dosage: UNK
     Dates: start: 20131111, end: 20140206
  9. RIFAMPIN [Concomitant]
     Dosage: UNK
     Dates: start: 20131213, end: 20140206
  10. ETHAMBUTOL HYDROCHLORIDE [Concomitant]
     Dosage: UNK
     Dates: start: 20131213, end: 20140206
  11. PZA (PYRAZINAMIDE) [Concomitant]
     Dosage: UNK
     Dates: start: 20131213, end: 20140206

REACTIONS (3)
  - Pneumonia [Fatal]
  - Disseminated tuberculosis [Unknown]
  - Pneumonia [Not Recovered/Not Resolved]
